FAERS Safety Report 14271925 (Version 2)
Quarter: 2017Q4

REPORT INFORMATION
  Report Type: Spontaneous
  Country: US (occurrence: US)
  Receive Date: 20171211
  Receipt Date: 20171222
  Transmission Date: 20180321
  Serious: Yes (Hospitalization, Other)
  Sender: FDA-Public Use
  Company Number: US-ACTELION-A-NJ2017-163558

PATIENT
  Age: 52 Year
  Sex: Female
  Weight: 68.27 kg

DRUGS (28)
  1. EPIPEN [Concomitant]
     Active Substance: EPINEPHRINE
     Dosage: 0.3 MG, PRN
     Route: 030
  2. OXYGEN. [Concomitant]
     Active Substance: OXYGEN
  3. ALDACTONE [Concomitant]
     Active Substance: SPIRONOLACTONE
     Dosage: 25 MG, QD
     Route: 048
  4. ZOFRAN [Concomitant]
     Active Substance: ONDANSETRON HYDROCHLORIDE
  5. VELETRI [Suspect]
     Active Substance: EPOPROSTENOL
     Indication: PRODUCT USED FOR UNKNOWN INDICATION
     Route: 042
  6. TYVASO [Suspect]
     Active Substance: TREPROSTINIL
     Indication: PULMONARY HYPERTENSION
  7. TESSALON [Concomitant]
     Active Substance: BENZONATATE
     Dosage: 100 MG, PRN
  8. POTASSIUM CHLORIDE. [Concomitant]
     Active Substance: POTASSIUM CHLORIDE
     Dosage: 20 MEQ, QD
     Route: 048
  9. VITAMIN D3 CALCIUM [Concomitant]
     Active Substance: CALCIUM\CHOLECALCIFEROL
  10. MIRALAX [Concomitant]
     Active Substance: POLYETHYLENE GLYCOL 3350
  11. LETAIRIS [Suspect]
     Active Substance: AMBRISENTAN
     Indication: SCLERODERMA
     Dosage: UNK
     Route: 048
     Dates: start: 201609
  12. PRILOSEC [Concomitant]
     Active Substance: OMEPRAZOLE MAGNESIUM
     Indication: PULMONARY ARTERIAL HYPERTENSION
     Dosage: 40 MG, BID
     Route: 048
  13. VENTOLIN [Concomitant]
     Active Substance: ALBUTEROL SULFATE
     Dosage: 90 MCG, Q4HRS
     Route: 055
  14. FERROUS SULFATE. [Concomitant]
     Active Substance: FERROUS SULFATE
     Indication: IRON DEFICIENCY ANAEMIA
     Dosage: 324 MG, QD
     Route: 048
  15. ROXICODONE [Concomitant]
     Active Substance: OXYCODONE HYDROCHLORIDE
  16. ADVIL [Concomitant]
     Active Substance: IBUPROFEN
  17. BERAPROST [Suspect]
     Active Substance: BERAPROST
     Dosage: 2 TABLETS QID
     Route: 048
     Dates: start: 20141106
  18. ADCIRCA [Concomitant]
     Active Substance: TADALAFIL
     Indication: PULMONARY ARTERIAL HYPERTENSION
     Dosage: 40 MG, QD
     Route: 048
     Dates: start: 20130514
  19. DEMADEX [Concomitant]
     Active Substance: TORSEMIDE
  20. LETAIRIS [Suspect]
     Active Substance: AMBRISENTAN
     Indication: PULMONARY ARTERIAL HYPERTENSION
     Dosage: 10 MG, QD
     Route: 048
     Dates: start: 20120419, end: 201609
  21. ASPIRIN. [Concomitant]
     Active Substance: ASPIRIN
     Dosage: 325 MG, QD
     Route: 048
  22. PROCARDIA [Concomitant]
     Active Substance: NIFEDIPINE
     Indication: RAYNAUD^S PHENOMENON
     Dosage: 90 MG, QD
     Route: 048
  23. POTASSIUM BICARBONATE. [Concomitant]
     Active Substance: POTASSIUM BICARBONATE
     Dosage: 25 MG, QD
     Route: 048
  24. TYVASO [Suspect]
     Active Substance: TREPROSTINIL
     Indication: PULMONARY ARTERIAL HYPERTENSION
     Dosage: 18-72 MCG, QID
     Route: 055
     Dates: start: 20140708
  25. BERAPROST [Suspect]
     Active Substance: BERAPROST
     Indication: PULMONARY ARTERIAL HYPERTENSION
     Dosage: 120 MCG, QD
     Route: 048
  26. ATIVAN [Concomitant]
     Active Substance: LORAZEPAM
     Indication: ANXIETY
     Dosage: 1 MG, UNK
     Route: 048
  27. VOLTAREN [Concomitant]
     Active Substance: DICLOFENAC SODIUM
     Dosage: 1 %, BID
     Route: 061
  28. VITAMIN C [Concomitant]
     Active Substance: ASCORBIC ACID

REACTIONS (33)
  - Urinary tract infection bacterial [Recovered/Resolved]
  - Off label use [Unknown]
  - Non-cardiac chest pain [Recovered/Resolved]
  - Weight increased [Unknown]
  - Pulmonary valve incompetence [Unknown]
  - Atelectasis [Unknown]
  - Tachycardia [Unknown]
  - Oxygen consumption increased [Unknown]
  - Bacteriuria [Unknown]
  - Insomnia [Not Recovered/Not Resolved]
  - Pericardial effusion [Unknown]
  - Painful respiration [Recovered/Resolved]
  - Blood creatinine increased [Unknown]
  - Dyspnoea exertional [Unknown]
  - Left ventricular hypertrophy [Unknown]
  - Tricuspid valve incompetence [Unknown]
  - Pain [Unknown]
  - Pleural effusion [Unknown]
  - Oedema peripheral [Recovered/Resolved]
  - Palpitations [Not Recovered/Not Resolved]
  - Pulmonary arterial pressure increased [Unknown]
  - Pulmonary arterial wedge pressure increased [Unknown]
  - Acute kidney injury [Recovered/Resolved]
  - Fluid retention [Unknown]
  - Right ventricular failure [Recovered/Resolved]
  - Brachiocephalic vein thrombosis [Recovered/Resolved]
  - Pericarditis [Recovered/Resolved with Sequelae]
  - Fluid overload [Recovered/Resolved]
  - Depression [Not Recovered/Not Resolved]
  - Cardiomegaly [Unknown]
  - Dyspnoea [Unknown]
  - Loss of personal independence in daily activities [Unknown]
  - Alanine aminotransferase decreased [Unknown]

NARRATIVE: CASE EVENT DATE: 20160811
